FAERS Safety Report 18189789 (Version 2)
Quarter: 2022Q4

REPORT INFORMATION
  Report Type: Spontaneous
  Country: US (occurrence: US)
  Receive Date: 20200825
  Receipt Date: 20221012
  Transmission Date: 20230113
  Serious: No
  Sender: FDA-Public Use
  Company Number: US-CELLTRION INC.-2019US025690

PATIENT

DRUGS (4)
  1. INFLECTRA [Suspect]
     Active Substance: INFLIXIMAB-DYYB
     Indication: Colitis ulcerative
     Dosage: 10 MG, EVERY 8 WEEKS
     Dates: start: 201807
  2. INFLECTRA [Suspect]
     Active Substance: INFLIXIMAB-DYYB
     Dosage: UNK
     Dates: start: 20190918
  3. LIALDA [Concomitant]
     Active Substance: MESALAMINE
     Dosage: 1.2 GRAM (1 TABLET), BID
     Dates: start: 201708
  4. METHOTREXATE SODIUM [Concomitant]
     Active Substance: METHOTREXATE SODIUM
     Dosage: 2.5 MG (4 TABLETS) ONCE A WEEK
     Dates: start: 201807

REACTIONS (1)
  - Underdose [Unknown]
